FAERS Safety Report 5205665-2 (Version None)
Quarter: 2007Q1

REPORT INFORMATION
  Report Type: 
  Country: None (occurrence: None)
  Receive Date: 20070105
  Receipt Date: 20070105
  Transmission Date: 20070707
  Serious: Yes (Hospitalization)
  Sender: FDA-Public Use
  Company Number: None

PATIENT
  Age: 67 Year
  Sex: Male
  Weight: 100.5 kg

DRUGS (13)
  1. FLUVASTATIN [Suspect]
     Indication: HYPERCHOLESTEROLAEMIA
     Dosage: 20 MG PO QD
     Route: 048
     Dates: start: 20050801, end: 20060722
  2. ABACAVIR SULFATE LAMIVUDINE AND ZIDOVUDINE [Concomitant]
  3. ASPIRIN [Concomitant]
  4. METOPROLOL SUCCINATE [Concomitant]
  5. TAMSULOSIN HCL [Concomitant]
  6. METFORMIN [Concomitant]
  7. GABAPENTIN [Concomitant]
  8. TESTOSTERONE [Concomitant]
  9. MORPHINE SULFATE [Concomitant]
  10. VALACYCLOVIR [Concomitant]
  11. VALSARTAN/HCTZ [Concomitant]
  12. ROSIGLITAZONE [Concomitant]
  13. VENLAFAXINE HCL [Concomitant]

REACTIONS (10)
  - ASTHENIA [None]
  - BLOOD UREA ABNORMAL [None]
  - DEHYDRATION [None]
  - DIARRHOEA [None]
  - FEELING HOT [None]
  - HEAT EXHAUSTION [None]
  - NAUSEA [None]
  - POLYDIPSIA [None]
  - POLYURIA [None]
  - RHABDOMYOLYSIS [None]
